FAERS Safety Report 14882885 (Version 2)
Quarter: 2018Q2

REPORT INFORMATION
  Report Type: Spontaneous
  Country: US (occurrence: US)
  Receive Date: 20180511
  Receipt Date: 20180515
  Transmission Date: 20180711
  Serious: No
  Sender: FDA-Public Use
  Company Number: PHEH2018US017167

PATIENT
  Sex: Female

DRUGS (1)
  1. COSENTYX [Suspect]
     Active Substance: SECUKINUMAB
     Indication: HIDRADENITIS
     Dosage: UNK
     Route: 065

REACTIONS (3)
  - Psoriasis [Unknown]
  - Product use in unapproved indication [Unknown]
  - Alopecia [Unknown]
